FAERS Safety Report 10404087 (Version 2)
Quarter: 2014Q3

REPORT INFORMATION
  Report Type: Spontaneous
  Country: US (occurrence: None)
  Receive Date: 20130815
  Receipt Date: 20140815
  Transmission Date: 20150326
  Serious: Yes (Other)
  Sender: FDA-Public Use
  Company Number: ADR-2011-10102

PATIENT
  Age: 45 Year
  Sex: Female

DRUGS (3)
  1. MORPHINE [Concomitant]
     Active Substance: MORPHINE
  2. LIORESAL [Suspect]
     Active Substance: BACLOFEN
     Indication: PAIN
  3. BUPIVACAINE [Concomitant]
     Active Substance: BUPIVACAINE

REACTIONS (9)
  - Implant site infection [None]
  - Drug withdrawal syndrome [None]
  - Road traffic accident [None]
  - No therapeutic response [None]
  - Impaired healing [None]
  - Implant site swelling [None]
  - Implant site erythema [None]
  - Haematemesis [None]
  - Pain [None]

NARRATIVE: CASE EVENT DATE: 20110113
